FAERS Safety Report 7473880-3 (Version None)
Quarter: 2011Q2

REPORT INFORMATION
  Report Type: 
  Country: None (occurrence: None)
  Receive Date: 20110511
  Receipt Date: 20110509
  Transmission Date: 20111010
  Serious: Yes (Hospitalization)
  Sender: FDA-Public Use
  Company Number: US-TEVA-280751USA

PATIENT
  Sex: Male

DRUGS (8)
  1. LEVOTHYROXINE SODIUM [Concomitant]
  2. PANTOPRAZOLE [Concomitant]
  3. BACLOFEN [Concomitant]
  4. CARBAMAZEPINE [Concomitant]
  5. COPAXONE [Suspect]
     Indication: MULTIPLE SCLEROSIS
     Route: 058
  6. CETIRIZINE HYDROCHLORIDE [Concomitant]
  7. NORTRIPTYLINE HYDROCHLORIDE [Concomitant]
  8. INTERFERON BETA-1A [Concomitant]

REACTIONS (1)
  - LEUKOPENIA [None]
